FAERS Safety Report 25101718 (Version 2)
Quarter: 2025Q1

REPORT INFORMATION
  Report Type: Spontaneous
  Country: US (occurrence: US)
  Receive Date: 20250320
  Receipt Date: 20250324
  Transmission Date: 20250409
  Serious: Yes (Other)
  Sender: ABBVIE
  Company Number: US-ABBVIE-6188285

PATIENT
  Sex: Female

DRUGS (7)
  1. BOTOX COSMETIC [Suspect]
     Active Substance: ONABOTULINUMTOXINA
     Indication: Skin wrinkling
     Route: 065
     Dates: start: 20230120, end: 20230120
  2. BOTOX COSMETIC [Suspect]
     Active Substance: ONABOTULINUMTOXINA
     Indication: Skin wrinkling
     Route: 065
     Dates: start: 202404, end: 202404
  3. BOTOX COSMETIC [Suspect]
     Active Substance: ONABOTULINUMTOXINA
     Indication: Skin wrinkling
     Route: 065
     Dates: start: 202404, end: 202404
  4. BOTOX COSMETIC [Suspect]
     Active Substance: ONABOTULINUMTOXINA
     Indication: Skin wrinkling
     Route: 065
     Dates: start: 202404, end: 202404
  5. BOTOX COSMETIC [Suspect]
     Active Substance: ONABOTULINUMTOXINA
     Indication: Skin wrinkling
     Route: 065
     Dates: start: 202404, end: 202404
  6. DYSPORT [Suspect]
     Active Substance: ABOBOTULINUMTOXINA
     Indication: Product used for unknown indication
     Route: 065
  7. DAXXIFY [Suspect]
     Active Substance: DAXIBOTULINUMTOXIN A-LANM
     Indication: Product used for unknown indication
     Route: 065

REACTIONS (5)
  - Surgery [Not Recovered/Not Resolved]
  - Therapeutic response shortened [Not Recovered/Not Resolved]
  - Drug ineffective [Not Recovered/Not Resolved]
  - COVID-19 [Not Recovered/Not Resolved]
  - Drug ineffective [Not Recovered/Not Resolved]

NARRATIVE: CASE EVENT DATE: 20230101
